FAERS Safety Report 7031673-5 (Version None)
Quarter: 2010Q4

REPORT INFORMATION
  Report Type: 
  Country: None (occurrence: None)
  Receive Date: 20101001
  Receipt Date: 20100920
  Transmission Date: 20110411
  Serious: Yes (Other)
  Sender: FDA-Public Use
  Company Number: 018346

PATIENT
  Sex: Female
  Weight: 109.8 kg

DRUGS (3)
  1. CIMZIA [Suspect]
     Indication: CROHN'S DISEASE
     Dosage: 400 MG 1X/MONTH; SUBCUTANEOUS
     Route: 058
     Dates: start: 20100101
  2. DIOVAN [Concomitant]
  3. XANAX [Concomitant]

REACTIONS (10)
  - ANXIETY [None]
  - BACK PAIN [None]
  - CRYSTAL URINE [None]
  - FATIGUE [None]
  - HYPERTENSION [None]
  - OCULAR ICTERUS [None]
  - PAIN [None]
  - SLEEP DISORDER [None]
  - URINARY TRACT INFECTION [None]
  - URINARY TRACT OBSTRUCTION [None]
